FAERS Safety Report 8288130-8 (Version None)
Quarter: 2012Q2

REPORT INFORMATION
  Report Type: 
  Country: None (occurrence: None)
  Receive Date: 20120416
  Receipt Date: 20120406
  Transmission Date: 20120825
  Serious: Yes (Hospitalization)
  Sender: FDA-Public Use
  Company Number: FR-BRISTOL-MYERS SQUIBB COMPANY-16514481

PATIENT
  Age: 92 Year
  Sex: Male

DRUGS (3)
  1. COUMADIN [Suspect]
     Indication: PULMONARY EMBOLISM
     Dosage: ALSO 1.5GM
     Route: 048
     Dates: start: 20120210
  2. TAMIFLU [Interacting]
     Dosage: CAPS
     Route: 048
     Dates: start: 20120223, end: 20120228
  3. AMOXICILLIN AND CLAVULANATE POTASSIUM [Interacting]
     Dosage: 1DF=1GM/125MG POWDER FOR ORAL SUSPENSION IN SACHET DOSE 3GM
     Route: 048
     Dates: start: 20120222, end: 20120223

REACTIONS (3)
  - DRUG INTERACTION [None]
  - INFLUENZA [None]
  - INTERNATIONAL NORMALISED RATIO INCREASED [None]
